FAERS Safety Report 13278018 (Version 1)
Quarter: 2017Q1

REPORT INFORMATION
  Report Type: Spontaneous
  Country: US (occurrence: US)
  Receive Date: 20170228
  Receipt Date: 20170228
  Transmission Date: 20170428
  Serious: No
  Sender: FDA-Public Use
  Company Number: US-PFIZER INC-2016400568

PATIENT
  Age: 54 Year
  Sex: Female

DRUGS (19)
  1. PREVACID [Concomitant]
     Active Substance: LANSOPRAZOLE
     Dosage: 30 MG, DAILY
     Route: 048
  2. XANAX [Concomitant]
     Active Substance: ALPRAZOLAM
     Dosage: 0.25 MG, AS NEEDED(THREE TIMES DAILY AS NEEDED)
     Route: 048
  3. DELTASONE [Concomitant]
     Active Substance: PREDNISONE
     Dosage: 40 MG, DAILY
     Route: 048
  4. ASPIRIN. [Concomitant]
     Active Substance: ASPIRIN
     Dosage: 81 MG, 1X/DAY (IN THE MORNING)
     Route: 048
  5. TENORMIN [Concomitant]
     Active Substance: ATENOLOL
     Dosage: 100 MG, DAILY
     Route: 048
  6. CELEXA [Concomitant]
     Active Substance: CITALOPRAM HYDROBROMIDE
     Dosage: 40 MG, DAILY
     Route: 048
  7. COMPAZINE [Concomitant]
     Active Substance: PROCHLORPERAZINE MALEATE
     Indication: VOMITING
  8. BENTYL [Concomitant]
     Active Substance: DICYCLOMINE HYDROCHLORIDE
     Dosage: 20 MG, AS NEEDED(FOUR TIMES DAILY AS NEEDED)
     Route: 048
  9. ROXICODONE [Concomitant]
     Active Substance: OXYCODONE HYDROCHLORIDE
     Indication: PAIN
     Dosage: 5 MG, AS NEEDED(TAKE 1 TAB EVERY 8 HOURS AS NEEDED/DO NOT EXCEED 3 TABLETS PER DAY)
  10. CARAFATE [Concomitant]
     Active Substance: SUCRALFATE
     Dosage: 1 G, 4X/DAY
     Route: 048
  11. LYRICA [Suspect]
     Active Substance: PREGABALIN
     Dosage: 100 MG, 2X/DAY
     Route: 048
  12. ZOFRAN ODT [Concomitant]
     Active Substance: ONDANSETRON HYDROCHLORIDE
     Indication: NAUSEA
     Dosage: 4 MG, AS NEEDED(TAKE 1 TABLET(4 MG) BY MOUTH EVERY 8 HOURS AS NEEDED)
     Route: 048
  13. VOLTAREN [Concomitant]
     Active Substance: DICLOFENAC SODIUM
     Dosage: 2 G, AS NEEDED (APPLY 2 TO 4 GRAMS TO AFFECTED SI AND HIP AREA EVERY 4 TO 6 HOURS AS NEEDED)
     Route: 061
  14. ZOFRAN ODT [Concomitant]
     Active Substance: ONDANSETRON HYDROCHLORIDE
     Indication: VOMITING
  15. TENORMIN [Concomitant]
     Active Substance: ATENOLOL
     Dosage: 50 MG, DAILY
     Route: 048
  16. PROTONIX [Concomitant]
     Active Substance: PANTOPRAZOLE SODIUM
     Dosage: 40 MG, 2X/DAY
     Route: 048
  17. COMPAZINE [Concomitant]
     Active Substance: PROCHLORPERAZINE MALEATE
     Indication: NAUSEA
     Dosage: 10 MG, AS NEEDED(TAKE 1 TABLET (10 MG)BY MOUTH EVERY 8 HOURS AS NEEDED)
     Route: 048
  18. ANUSOL HC [Concomitant]
     Active Substance: HYDROCORTISONE
     Dosage: 2.5 %, 2X/DAY
     Route: 054
  19. IMODIUM A-D [Concomitant]
     Active Substance: LOPERAMIDE HYDROCHLORIDE
     Dosage: 2 MG, AS NEEDED
     Route: 048

REACTIONS (1)
  - Peripheral swelling [Unknown]
